FAERS Safety Report 8008988-7 (Version None)
Quarter: 2011Q4

REPORT INFORMATION
  Report Type: 
  Country: None (occurrence: None)
  Receive Date: 20111227
  Receipt Date: 20111223
  Transmission Date: 20120403
  Serious: No
  Sender: FDA-Public Use
  Company Number: US-PFIZER INC-2011312794

PATIENT
  Age: 15 Year
  Sex: Male

DRUGS (3)
  1. GEODON [Suspect]
     Indication: DEPRESSION
     Dosage: 20 MG, UNK
     Dates: start: 20111214, end: 20111219
  2. GEODON [Suspect]
     Dosage: 80 MG, UNK
     Dates: start: 20111222
  3. GEODON [Suspect]
     Dosage: 40 MG, UNK
     Dates: start: 20111220, end: 20111221

REACTIONS (5)
  - RESTLESS LEGS SYNDROME [None]
  - POOR QUALITY SLEEP [None]
  - AGITATION [None]
  - RESTLESSNESS [None]
  - INSOMNIA [None]
